FAERS Safety Report 5909657-7 (Version None)
Quarter: 2008Q4

REPORT INFORMATION
  Report Type: 
  Country: None (occurrence: None)
  Receive Date: 20081007
  Receipt Date: 20080930
  Transmission Date: 20090506
  Serious: Yes (Hospitalization, Other)
  Sender: FDA-Public Use
  Company Number: PHHY2008JP21797

PATIENT
  Age: 57 Year
  Sex: Male

DRUGS (5)
  1. CYCLOSPORINE [Suspect]
     Indication: APLASTIC ANAEMIA
  2. ANTI-THYMOCYTE GLOBULIN NOS [Concomitant]
  3. STEROIDS NOS [Concomitant]
  4. NEUPOGEN [Concomitant]
  5. LAMIVUDINE [Concomitant]
     Indication: HEPATITIS B SURFACE ANTIGEN POSITIVE
     Dosage: 100 MG PER DAY

REACTIONS (7)
  - FOCAL SEGMENTAL GLOMERULOSCLEROSIS [None]
  - HEPATITIS B [None]
  - HEPATITIS B SURFACE ANTIGEN POSITIVE [None]
  - HYPERCHOLESTEROLAEMIA [None]
  - HYPOALBUMINAEMIA [None]
  - OEDEMA [None]
  - PROTEINURIA [None]
